FAERS Safety Report 9222588 (Version 1)
Quarter: 2013Q2

REPORT INFORMATION
  Report Type: Spontaneous
  Country: CZ (occurrence: CZ)
  Receive Date: 20130410
  Receipt Date: 20130410
  Transmission Date: 20140414
  Serious: Yes (Hospitalization)
  Sender: FDA-Public Use
  Company Number: CZ-PFIZER INC-2013107010

PATIENT
  Age: 67 Year
  Sex: Male

DRUGS (17)
  1. DALACIN [Suspect]
     Indication: ERYSIPELAS
     Route: 042
  2. DALACIN [Suspect]
     Dosage: 600 MG, 3X/DAY
     Dates: start: 20130204, end: 20130210
  3. NOVALGIN [Suspect]
     Dosage: 1 DF, 3X/DAY
  4. MAGNESIUM LACTATE [Suspect]
     Dosage: 1 DF, 2X/DAY
  5. CIPLOX [Suspect]
     Indication: ERYSIPELAS
     Dosage: 500 MG, 2X/DAY
     Dates: start: 20130207
  6. FURON [Concomitant]
     Dosage: 1-0-0
  7. MOXONIDINE [Concomitant]
     Dosage: 1-0-1
  8. FOSINOPRIL [Concomitant]
     Dosage: 2-0-0
  9. DOBICA [Concomitant]
     Dosage: 1 DF, 2X/DAY (1-0-1)
  10. GODASAL [Concomitant]
     Dosage: 0-1-0
  11. DETRALEX [Concomitant]
     Dosage: 2-0-0
  12. METFORMIN [Concomitant]
     Dosage: 0-0-1
  13. TENORMIN [Concomitant]
     Dosage: 1-0-0
  14. ATROVENT [Concomitant]
  15. POTASSIUM CHLORIDE [Concomitant]
     Dosage: 1 DF, 3X/DAY
  16. FORMOTEROL [Concomitant]
     Dosage: 2-0-2
  17. NITRENDIPINE [Concomitant]
     Dosage: 1-0-0

REACTIONS (1)
  - Drug eruption [Recovered/Resolved]
